FAERS Safety Report 10479775 (Version 2)
Quarter: 2014Q4

REPORT INFORMATION
  Report Type: Spontaneous
  Country: US (occurrence: US)
  Receive Date: 20140928
  Receipt Date: 20141104
  Transmission Date: 20150528
  Serious: No
  Sender: FDA-Public Use
  Company Number: US-ASTRAZENECA-2014SE67332

PATIENT
  Age: 73 Year
  Sex: Female

DRUGS (3)
  1. PREMARINE [Concomitant]
     Indication: SLEEP DISORDER
     Dosage: 0.026 DAILY
     Route: 048
  2. SYNTHROID [Concomitant]
     Active Substance: LEVOTHYROXINE SODIUM
     Indication: THYROID DISORDER
     Dosage: UNKNOWN DAILY
     Route: 048
  3. PULMICORT FLEXHALER [Suspect]
     Active Substance: BUDESONIDE
     Indication: ASTHMA
     Dosage: 2 PUFFS BID
     Route: 055
     Dates: start: 20140906

REACTIONS (4)
  - Device misuse [Unknown]
  - Dyspnoea [Unknown]
  - Intentional product misuse [Unknown]
  - Wheezing [Unknown]

NARRATIVE: CASE EVENT DATE: 20140906
